FAERS Safety Report 14215710 (Version 1)
Quarter: 2017Q4

REPORT INFORMATION
  Report Type: Spontaneous
  Country: US (occurrence: US)
  Receive Date: 20171122
  Receipt Date: 20171122
  Transmission Date: 20180321
  Serious: No
  Sender: FDA-Public Use
  Company Number: US-PFIZER INC-2017496008

PATIENT
  Age: 60 Year
  Sex: Female

DRUGS (1)
  1. EUCRISA [Suspect]
     Active Substance: CRISABOROLE
     Dosage: UNK, TWICE A DAY (2 WEEKS)
     Dates: start: 20171106

REACTIONS (3)
  - Application site erythema [Unknown]
  - Application site exfoliation [Unknown]
  - Application site fissure [Unknown]

NARRATIVE: CASE EVENT DATE: 201711
